FAERS Safety Report 5705335-8 (Version None)
Quarter: 2008Q2

REPORT INFORMATION
  Report Type: 
  Country: None (occurrence: None)
  Receive Date: 20080410
  Receipt Date: 20080328
  Transmission Date: 20081010
  Serious: Yes (Life-Threatening, Hospitalization)
  Sender: FDA-Public Use
  Company Number: 2008BI004172

PATIENT
  Age: 25 Year
  Sex: Female

DRUGS (1)
  1. AVONEX [Suspect]
     Indication: MULTIPLE SCLEROSIS
     Dosage: 30 UG;QW;IM
     Route: 030
     Dates: start: 20060301, end: 20080202

REACTIONS (4)
  - CARDIOGENIC SHOCK [None]
  - CHEST PAIN [None]
  - NAUSEA [None]
  - VERTIGO [None]
